FAERS Safety Report 15780701 (Version 1)
Quarter: 2019Q1

REPORT INFORMATION
  Report Type: Spontaneous
  Country: CA (occurrence: CA)
  Receive Date: 20190102
  Receipt Date: 20190102
  Transmission Date: 20190417
  Serious: Yes (Other)
  Sender: FDA-Public Use
  Company Number: CA-ROCHE-2236535

PATIENT
  Sex: Male

DRUGS (2)
  1. IVIG [Suspect]
     Active Substance: HUMAN IMMUNOGLOBULIN G
     Indication: PRODUCT USED FOR UNKNOWN INDICATION
     Route: 065
  2. CELLCEPT [Suspect]
     Active Substance: MYCOPHENOLATE MOFETIL\MYCOPHENOLATE MOFETIL HYDROCHLORIDE
     Indication: PRODUCT USED FOR UNKNOWN INDICATION
     Route: 065

REACTIONS (11)
  - Inclusion body myositis [Unknown]
  - Raynaud^s phenomenon [Unknown]
  - Oesophageal motility disorder [Unknown]
  - Loss of personal independence in daily activities [Unknown]
  - Scleroderma [Unknown]
  - Asthenia [Unknown]
  - Rash [Unknown]
  - Telangiectasia [Unknown]
  - Dysphagia [Unknown]
  - Ill-defined disorder [Unknown]
  - Gastrooesophageal reflux disease [Unknown]
